FAERS Safety Report 9434871 (Version 1)
Quarter: 2013Q3

REPORT INFORMATION
  Report Type: Spontaneous
  Country: US (occurrence: US)
  Receive Date: 20130801
  Receipt Date: 20130801
  Transmission Date: 20140515
  Serious: Yes (Other)
  Sender: FDA-Public Use
  Company Number: US-ASTRAZENECA-2013SE56484

PATIENT
  Age: 69 Year
  Sex: Female
  Weight: 81.6 kg

DRUGS (13)
  1. NEXIUM [Suspect]
     Indication: GASTROOESOPHAGEAL REFLUX DISEASE
     Route: 048
     Dates: start: 2002
  2. NEXIUM [Suspect]
     Indication: HIATUS HERNIA
     Route: 048
     Dates: start: 2002
  3. NEXIUM [Suspect]
     Indication: GASTRITIS
     Route: 048
     Dates: start: 2002
  4. METOPROLOL SUCCINATE [Suspect]
     Indication: HYPERTENSION
     Route: 048
     Dates: start: 201302
  5. FLONASE [Concomitant]
     Indication: MULTIPLE ALLERGIES
     Dosage: 2 SPRAYS BID
     Route: 045
     Dates: start: 201306
  6. ALLEGRA [Concomitant]
     Indication: MULTIPLE ALLERGIES
     Route: 048
     Dates: start: 201306
  7. LIPITOR [Concomitant]
     Indication: BLOOD CHOLESTEROL INCREASED
     Route: 048
  8. AMLODOPINE [Concomitant]
     Indication: DIURETIC THERAPY
     Route: 048
     Dates: start: 201302
  9. ASPIRIN [Concomitant]
     Route: 048
     Dates: start: 201302
  10. LOSARTAN [Concomitant]
     Indication: HYPERTENSION
     Route: 048
  11. SERTRALINE [Concomitant]
     Indication: DEPRESSION
     Route: 048
  12. ALPRAZOLAM [Concomitant]
     Indication: DEPRESSION
     Route: 048
  13. PERCOCET [Concomitant]
     Indication: PAIN
     Route: 048

REACTIONS (12)
  - Upper limb fracture [Unknown]
  - Spinal column stenosis [Unknown]
  - Amnesia [Unknown]
  - Bronchitis [Unknown]
  - Bursitis [Unknown]
  - Intervertebral disc degeneration [Unknown]
  - Fall [Unknown]
  - Weight increased [Unknown]
  - Depression [Unknown]
  - Dizziness [Unknown]
  - Dyspnoea [Unknown]
  - Sneezing [Unknown]
